FAERS Safety Report 6268829-5 (Version None)
Quarter: 2009Q3

REPORT INFORMATION
  Report Type: 
  Country: None (occurrence: None)
  Receive Date: 20090710
  Receipt Date: 20090710
  Transmission Date: 20100115
  Serious: No
  Sender: FDA-Public Use
  Company Number: None

PATIENT
  Age: 46 Year
  Sex: Female
  Weight: 54.4316 kg

DRUGS (1)
  1. LEXAPRO [Suspect]
     Indication: ANXIETY
     Dosage: 10MG 1 TIME A DAY PO
     Route: 048
     Dates: start: 20090701, end: 20090706

REACTIONS (4)
  - ABNORMAL BEHAVIOUR [None]
  - DIZZINESS [None]
  - SOMNOLENCE [None]
  - VISION BLURRED [None]
